FAERS Safety Report 8134967-5 (Version None)
Quarter: 2012Q1

REPORT INFORMATION
  Report Type: 
  Country: None (occurrence: None)
  Receive Date: 20120214
  Receipt Date: 20120209
  Transmission Date: 20120608
  Serious: Yes (Hospitalization, Other)
  Sender: FDA-Public Use
  Company Number: US-PFIZER INC-2012036027

PATIENT
  Sex: Male
  Weight: 136 kg

DRUGS (2)
  1. EFFEXOR XR [Suspect]
     Indication: DEPRESSION
  2. EFFEXOR XR [Suspect]
     Indication: ANXIETY
     Dosage: 75 MG, DAILY

REACTIONS (11)
  - DRUG INEFFECTIVE [None]
  - ABDOMINAL PAIN [None]
  - GASTRITIS EROSIVE [None]
  - DUODENITIS [None]
  - GASTRITIS [None]
  - BLOOD CHOLESTEROL INCREASED [None]
  - HYPOAESTHESIA [None]
  - GALLBLADDER ENLARGEMENT [None]
  - BACK PAIN [None]
  - PARAESTHESIA [None]
  - CHEST PAIN [None]
